FAERS Safety Report 16616978 (Version 1)
Quarter: 2019Q3

REPORT INFORMATION
  Report Type: Spontaneous
  Country: US (occurrence: US)
  Receive Date: 20190723
  Receipt Date: 20190723
  Transmission Date: 20191004
  Serious: No
  Sender: FDA-Public Use
  Company Number: US-TEVA-2019-US-1080282

PATIENT
  Sex: Female

DRUGS (1)
  1. METHYLPREDNISOLONE. [Suspect]
     Active Substance: METHYLPREDNISOLONE
     Indication: ARTHRITIS
     Dosage: STRENGTH: 4MG
     Route: 065
     Dates: start: 20190713

REACTIONS (6)
  - Cold sweat [Unknown]
  - Pain [Unknown]
  - Blood pressure systolic increased [Unknown]
  - Drug ineffective [Unknown]
  - Nervousness [Unknown]
  - Dizziness [Unknown]

NARRATIVE: CASE EVENT DATE: 20190714
